FAERS Safety Report 5659661-1 (Version None)
Quarter: 2008Q1

REPORT INFORMATION
  Report Type: 
  Country: None (occurrence: None)
  Receive Date: 20080311
  Receipt Date: 20080303
  Transmission Date: 20080703
  Serious: Yes (Hospitalization)
  Sender: FDA-Public Use
  Company Number: IT-ASTRAZENECA-2008SE01180

PATIENT
  Age: 13389 Day
  Sex: Male

DRUGS (10)
  1. SEROQUEL [Suspect]
     Indication: SCHIZOPHRENIA
     Route: 048
     Dates: start: 20060524, end: 20070326
  2. SEROQUEL [Suspect]
     Route: 048
     Dates: start: 20070327
  3. DEPAKENE [Concomitant]
     Route: 048
     Dates: start: 20070121, end: 20070306
  4. DEPAKENE [Concomitant]
     Route: 048
     Dates: start: 20070307, end: 20070326
  5. DEPAKENE [Concomitant]
     Route: 048
     Dates: start: 20070327, end: 20070416
  6. DEPAKENE [Concomitant]
     Route: 048
     Dates: start: 20070417
  7. LORAZEPAM DOROM [Concomitant]
     Route: 048
     Dates: start: 20060524, end: 20070306
  8. LORAZEPAM DOROM [Concomitant]
     Route: 048
     Dates: start: 20070307, end: 20070326
  9. LORAZEPAM DOROM [Concomitant]
     Route: 048
     Dates: start: 20070417, end: 20070518
  10. LORAZEPAM DOROM [Concomitant]
     Route: 048
     Dates: start: 20070519

REACTIONS (1)
  - PSYCHOTIC DISORDER [None]
